FAERS Safety Report 14203930 (Version 1)
Quarter: 2017Q4

REPORT INFORMATION
  Report Type: Report from Study
  Country: GB (occurrence: GB)
  Receive Date: 20171120
  Receipt Date: 20171120
  Transmission Date: 20180321
  Serious: Yes (Hospitalization, Other)
  Sender: FDA-Public Use
  Company Number: GB-ROCHE-1996389

PATIENT
  Sex: Male

DRUGS (1)
  1. ROACTEMRA [Suspect]
     Active Substance: TOCILIZUMAB
     Indication: RHEUMATOID ARTHRITIS
     Route: 058
     Dates: start: 20160316

REACTIONS (8)
  - Pneumonia [Unknown]
  - Deafness [Unknown]
  - Sepsis [Unknown]
  - Infection [Unknown]
  - Cough [Unknown]
  - Nasopharyngitis [Unknown]
  - Sinus disorder [Unknown]
  - Tympanic membrane perforation [Unknown]
